FAERS Safety Report 18205241 (Version 1)
Quarter: 2020Q3

REPORT INFORMATION
  Report Type: Spontaneous
  Country: US (occurrence: US)
  Receive Date: 20200828
  Receipt Date: 20200828
  Transmission Date: 20201103
  Serious: No
  Sender: FDA-Public Use
  Company Number: US-ELI_LILLY_AND_COMPANY-US202007013648

PATIENT
  Age: 50 Year
  Sex: Female

DRUGS (5)
  1. HUMALOG [Suspect]
     Active Substance: INSULIN LISPRO
     Indication: PRODUCT USED FOR UNKNOWN INDICATION
     Dosage: UNK UNK, UNKNOWN
     Route: 065
  2. HUMULIN R U?500 [Suspect]
     Active Substance: INSULIN HUMAN
     Indication: TYPE 2 DIABETES MELLITUS
     Dosage: 80 U, TID
     Route: 058
     Dates: start: 202001
  3. HUMULIN R U?500 [Suspect]
     Active Substance: INSULIN HUMAN
     Dosage: 80 U, TID
     Route: 058
  4. BASAGLAR [Suspect]
     Active Substance: INSULIN GLARGINE
     Indication: PRODUCT USED FOR UNKNOWN INDICATION
     Dosage: UNK UNK, UNKNOWN
     Route: 065
  5. HUMULIN R U?500 [Suspect]
     Active Substance: INSULIN HUMAN
     Dosage: 80 U, TID
     Route: 058

REACTIONS (8)
  - Asthenia [Unknown]
  - Malaise [Unknown]
  - Nausea [Unknown]
  - Blood glucose increased [Unknown]
  - Dizziness [Unknown]
  - Drug hypersensitivity [Unknown]
  - Visual impairment [Not Recovered/Not Resolved]
  - Product storage error [Unknown]

NARRATIVE: CASE EVENT DATE: 20200729
